FAERS Safety Report 6490836-8 (Version None)
Quarter: 2009Q4

REPORT INFORMATION
  Report Type: 
  Country: None (occurrence: None)
  Receive Date: 20091124
  Receipt Date: 20090506
  Transmission Date: 20100525
  Serious: Yes (Other)
  Sender: FDA-Public Use
  Company Number: 281083

PATIENT
  Age: 56 Year
  Sex: Female
  Weight: 62.1 kg

DRUGS (7)
  1. HERCEPTIN [Suspect]
     Indication: BREAST CANCER
     Dosage: 487 MG, SINGLE, INTRAVENOUS; 365 MG, Q3W, INTRAVENOUS
     Route: 042
     Dates: start: 20081007, end: 20090331
  2. ANTI-NAUSEA MEDICATION (ANTIEMETIC NOS) [Concomitant]
  3. MARINOL [Concomitant]
  4. DEXEDRINE [Concomitant]
  5. AMITRIPTYLINE HCL [Concomitant]
  6. PROZAC [Concomitant]
  7. PREMPRO [Concomitant]

REACTIONS (2)
  - EJECTION FRACTION DECREASED [None]
  - NAUSEA [None]
